FAERS Safety Report 17206357 (Version 1)
Quarter: 2020Q1

REPORT INFORMATION
  Report Type: Spontaneous
  Country: US (occurrence: US)
  Receive Date: 20191226
  Receipt Date: 20191226
  Transmission Date: 20200409
  Serious: Yes (Other)
  Sender: FDA-Public Use
  Company Number: None

PATIENT
  Age: 52 Year
  Sex: Male

DRUGS (3)
  1. PAROXETINE 10MG [Concomitant]
     Active Substance: PAROXETINE HYDROCHLORIDE
     Dates: start: 20191217
  2. PAROXETINE. [Suspect]
     Active Substance: PAROXETINE
     Indication: DEPRESSION
     Route: 048
     Dates: start: 20191009
  3. MIRTAZAPINE ODT 45MG [Concomitant]
     Dates: start: 20191009

REACTIONS (2)
  - Aggression [None]
  - Hostility [None]

NARRATIVE: CASE EVENT DATE: 20191224
